FAERS Safety Report 19428331 (Version 1)
Quarter: 2021Q2

REPORT INFORMATION
  Report Type: Spontaneous
  Country: US (occurrence: US)
  Receive Date: 20210617
  Receipt Date: 20210617
  Transmission Date: 20210717
  Serious: Yes (Other)
  Sender: FDA-Public Use
  Company Number: US-TEVA-2021-US-1922435

PATIENT
  Age: 14 Year

DRUGS (9)
  1. RITUXIMAB. [Suspect]
     Active Substance: RITUXIMAB
     Indication: EPSTEIN-BARR VIRUS ASSOCIATED LYMPHOPROLIFERATIVE DISORDER
     Dosage: FIRST INDUCTION THERAPY (CYCLE 1; 28 DAYS CYCLE) ADMINISTERED ON DAY 1, 8, 15 AND 22
     Route: 065
  2. BRENTUXIMAB VEDOTIN [Suspect]
     Active Substance: BRENTUXIMAB VEDOTIN
     Dosage: SECOND INDUCTION THERAPY (CYCLE 2; 42 DAYS CYCLE): ADMINISTERED ON DAY 1 AND 22
     Route: 065
  3. BRENTUXIMAB VEDOTIN [Suspect]
     Active Substance: BRENTUXIMAB VEDOTIN
     Dosage: MAINTENANCE THERAPY (CYCLES 3?7; 21 DAYS CYCLE): ADMINISTERED EVERY 3 WEEKS
     Route: 065
  4. RITUXIMAB. [Suspect]
     Active Substance: RITUXIMAB
     Dosage: MAINTENANCE THERAPY (CYCLES 3?7; 21 DAYS CYCLE): ADMINISTERED EVERY 3 WEEKS (TWO DOSES) FOLLOWED ...
     Route: 065
  5. BRENTUXIMAB VEDOTIN [Suspect]
     Active Substance: BRENTUXIMAB VEDOTIN
     Indication: EPSTEIN-BARR VIRUS ASSOCIATED LYMPHOPROLIFERATIVE DISORDER
     Dosage: FIRST INDUCTION THERAPY (CYCLE 1; 28 DAYS CYCLE): ADMINISTERED ON DAY 1, 8 AND 15
     Route: 065
  6. BRENTUXIMAB VEDOTIN [Suspect]
     Active Substance: BRENTUXIMAB VEDOTIN
     Dosage: MAINTENANCE CYCLES (CYCLE 8?9; 42 DAYS CYCLE): ADMINISTERED EVERY 3 WEEKS
     Route: 065
  7. PREDNISONE. [Suspect]
     Active Substance: PREDNISONE
     Indication: EPSTEIN-BARR VIRUS ASSOCIATED LYMPHOPROLIFERATIVE DISORDER
     Dosage: ADMINISTERED DURING MAINTENANCE CYCLES 3?5 ON DAYS 1?7
     Route: 065
  8. RITUXIMAB. [Suspect]
     Active Substance: RITUXIMAB
     Dosage: MAINTENANCE CYCLES (CYCLE 8?9; 42 DAYS CYCLE): ADMINISTERED EVERY 3 WEEKS
     Route: 065
  9. RITUXIMAB. [Suspect]
     Active Substance: RITUXIMAB
     Dosage: SECOND INDUCTION THERAPY (CYCLE 2; 42 DAYS CYCLE): ADMINISTERED ON DAY 1, 8, 15 AND 22
     Route: 065

REACTIONS (3)
  - Neuralgia [Recovering/Resolving]
  - Osteomyelitis [Unknown]
  - Off label use [Unknown]
